FAERS Safety Report 8065269-3 (Version None)
Quarter: 2011Q4

REPORT INFORMATION
  Report Type: 
  Country: None (occurrence: None)
  Receive Date: 20111221
  Receipt Date: 20110729
  Transmission Date: 20120403
  Serious: Yes (Disabling)
  Sender: FDA-Public Use
  Company Number: PHHY2011US35567

PATIENT
  Age: 79 Year
  Sex: Female
  Weight: 136 kg

DRUGS (1)
  1. EXJADE [Suspect]
     Indication: APLASTIC ANAEMIA
     Dosage: 1250 MG, QD, ORAL, 1000 MG, QD, ORAL
     Route: 048
     Dates: start: 20100112

REACTIONS (3)
  - GASTROINTESTINAL DISORDER [None]
  - HYPOACUSIS [None]
  - DEAFNESS [None]
